FAERS Safety Report 7480790-4 (Version None)
Quarter: 2011Q2

REPORT INFORMATION
  Report Type: 
  Country: None (occurrence: None)
  Receive Date: 20110506
  Receipt Date: 20110421
  Transmission Date: 20111010
  Serious: Yes (Other)
  Sender: FDA-Public Use
  Company Number: 2010CP000329

PATIENT
  Age: 38 Year
  Sex: Male

DRUGS (4)
  1. DIPYRONE TAB [Suspect]
     Indication: INFLUENZA LIKE ILLNESS
     Dosage: 1 DOSAGE FORM;
     Dates: start: 20101125, end: 20101127
  2. ACETAMINOPHEN [Suspect]
     Indication: HYPERTHERMIA
     Dosage: 1 GM, Q6H, IV
     Route: 042
     Dates: start: 20101125, end: 20101125
  3. QUININE SULFATE [Suspect]
     Indication: INFLUENZA LIKE ILLNESS
     Dosage: 1200 MG, QD;
     Dates: start: 20101125, end: 20101127
  4. HYDROSOL POLYVITAMINE (MULTIPLE VITAMINS) (NO PREF. NAME) [Suspect]
     Indication: INFLUENZA LIKE ILLNESS
     Dosage: 1 DOSAGE FORM, QD;
     Dates: start: 20101125, end: 20101127

REACTIONS (3)
  - CHILLS [None]
  - TONIC CONVULSION [None]
  - INFUSION RELATED REACTION [None]
